FAERS Safety Report 25622769 (Version 1)
Quarter: 2025Q3

REPORT INFORMATION
  Report Type: Spontaneous
  Country: US (occurrence: None)
  Receive Date: 20250730
  Receipt Date: 20250730
  Transmission Date: 20251020
  Serious: Yes (Hospitalization)
  Sender: FDA-CTU
  Company Number: None

PATIENT
  Age: 45 Year
  Sex: Female

DRUGS (1)
  1. XOLAIR PFS [Suspect]
     Active Substance: OMALIZUMAB
     Dosage: 300MG AEVERY 4 WEEKS ?

REACTIONS (4)
  - Hypoaesthesia [None]
  - Paraesthesia [None]
  - Chest discomfort [None]
  - Dyspnoea [None]
